FAERS Safety Report 17886958 (Version 1)
Quarter: 2020Q2

REPORT INFORMATION
  Report Type: Spontaneous
  Country: US (occurrence: US)
  Receive Date: 20200611
  Receipt Date: 20200611
  Transmission Date: 20200714
  Serious: No
  Sender: FDA-Public Use
  Company Number: US-009507513-2005USA009421

PATIENT
  Age: 79 Year
  Sex: Female

DRUGS (4)
  1. KEYTRUDA [Suspect]
     Active Substance: PEMBROLIZUMAB
     Indication: METASTASES TO LUNG
  2. KEYTRUDA [Suspect]
     Active Substance: PEMBROLIZUMAB
     Indication: MALIGNANT MELANOMA
     Dosage: 2 MILLIGRAM/KILOGRAM
     Route: 042
  3. SELINEXOR [Suspect]
     Active Substance: SELINEXOR
     Indication: METASTASES TO LUNG
  4. SELINEXOR [Suspect]
     Active Substance: SELINEXOR
     Indication: MALIGNANT MELANOMA
     Dosage: 60 MILLIGRAM, BIW
     Route: 048

REACTIONS (1)
  - Immune-mediated dermatitis [Recovering/Resolving]
